FAERS Safety Report 25976165 (Version 2)
Quarter: 2025Q4

REPORT INFORMATION
  Report Type: Report from Study
  Country: US (occurrence: US)
  Receive Date: 20251029
  Receipt Date: 20251117
  Transmission Date: 20260118
  Serious: No
  Sender: MALLINCKRODT
  Company Number: US-MALLINCKRODT-MNK202506517

PATIENT
  Age: 8 Month
  Sex: Female
  Weight: 8 kg

DRUGS (1)
  1. CORTICOTROPIN [Suspect]
     Active Substance: CORTICOTROPIN
     Indication: Infantile spasms
     Route: 030
     Dates: start: 20251013

REACTIONS (7)
  - Somnolence [Unknown]
  - Agitation [Unknown]
  - Moaning [Unknown]
  - Irritability [Unknown]
  - Swelling [Unknown]
  - Increased appetite [Unknown]
  - Oedema [Unknown]

NARRATIVE: CASE EVENT DATE: 20251001
